FAERS Safety Report 5447642-2 (Version None)
Quarter: 2007Q3

REPORT INFORMATION
  Report Type: 
  Country: None (occurrence: None)
  Receive Date: 20070910
  Receipt Date: 20070828
  Transmission Date: 20080115
  Serious: Yes (Other)
  Sender: FDA-Public Use
  Company Number: AU-ROCHE-509265

PATIENT
  Age: 33 Year
  Sex: Female

DRUGS (2)
  1. PEGASYS [Suspect]
     Indication: DRUG USE FOR UNKNOWN INDICATION
     Dosage: INDICATION REPORTED AS GENOTYPE 3A.
     Route: 065
     Dates: start: 20070412, end: 20070721
  2. RIBAVIRIN [Concomitant]
     Dates: start: 20070412, end: 20070721

REACTIONS (4)
  - BREAST MASS [None]
  - INGUINAL MASS [None]
  - LYMPHADENOPATHY [None]
  - MASS [None]
